FAERS Safety Report 18155054 (Version 1)
Quarter: 2020Q3

REPORT INFORMATION
  Report Type: Spontaneous
  Country: US (occurrence: US)
  Receive Date: 20200817
  Receipt Date: 20200817
  Transmission Date: 20201103
  Serious: Yes (Other)
  Sender: FDA-Public Use
  Company Number: US-SA-2020SA210670

PATIENT

DRUGS (1)
  1. ZANTAC [Suspect]
     Active Substance: RANITIDINE HYDROCHLORIDE
     Dosage: 300 MG, BID
     Dates: start: 2000, end: 2020

REACTIONS (5)
  - Carcinoid tumour [Unknown]
  - Anxiety [Unknown]
  - Injury [Unknown]
  - Carcinogenicity [Unknown]
  - Economic problem [Unknown]

NARRATIVE: CASE EVENT DATE: 201808
